FAERS Safety Report 5103905-1 (Version None)
Quarter: 2006Q3

REPORT INFORMATION
  Report Type: 
  Country: None (occurrence: None)
  Receive Date: 20060913
  Receipt Date: 20060905
  Transmission Date: 20061208
  Serious: Yes (Life-Threatening)
  Sender: FDA-Public Use
  Company Number: DE-BRISTOL-MYERS SQUIBB COMPANY-13504519

PATIENT
  Age: 54 Year
  Sex: Male

DRUGS (1)
  1. ERBITUX [Suspect]
     Indication: GASTROOESOPHAGEAL CANCER
     Route: 041
     Dates: start: 20060607, end: 20060607

REACTIONS (7)
  - BRONCHOSPASM [None]
  - DYSPNOEA [None]
  - HYPERSENSITIVITY [None]
  - HYPOTENSION [None]
  - HYPOTONIA [None]
  - INFUSION RELATED REACTION [None]
  - TACHYCARDIA [None]
